FAERS Safety Report 21373727 (Version 1)
Quarter: 2022Q3

REPORT INFORMATION
  Report Type: Report from Study
  Country: BR (occurrence: BR)
  Receive Date: 20220926
  Receipt Date: 20220926
  Transmission Date: 20221027
  Serious: Yes (Other)
  Sender: FDA-Public Use
  Company Number: BR-NOVARTISPH-NVSC2021BR243279

PATIENT
  Sex: Female

DRUGS (3)
  1. COSENTYX [Suspect]
     Active Substance: SECUKINUMAB
     Indication: Psoriasis
     Dosage: 300 MG
     Route: 065
     Dates: start: 20210628
  2. COSENTYX [Suspect]
     Active Substance: SECUKINUMAB
     Dosage: 300 MG
     Route: 065
     Dates: start: 20210929
  3. COSENTYX [Suspect]
     Active Substance: SECUKINUMAB
     Dosage: UNK
     Route: 065
     Dates: end: 202206

REACTIONS (11)
  - Cardiac failure [Recovering/Resolving]
  - Arthritis [Unknown]
  - Swelling [Recovered/Resolved]
  - Weight increased [Unknown]
  - Psoriasis [Recovering/Resolving]
  - Skin exfoliation [Unknown]
  - Pigmentation disorder [Unknown]
  - Erythema [Recovering/Resolving]
  - Blister [Recovering/Resolving]
  - Pruritus [Recovered/Resolved with Sequelae]
  - Drug ineffective [Unknown]

NARRATIVE: CASE EVENT DATE: 20220101
